FAERS Safety Report 24203498 (Version 1)
Quarter: 2024Q3

REPORT INFORMATION
  Report Type: Spontaneous
  Country: CN (occurrence: CN)
  Receive Date: 20240813
  Receipt Date: 20240813
  Transmission Date: 20241016
  Serious: Yes (Life-Threatening, Hospitalization, Other)
  Sender: CHEPLAPHARM
  Company Number: CN-CHEPLA-2024010272

PATIENT
  Age: 67 Year
  Sex: Male

DRUGS (11)
  1. CAPECITABINE [Suspect]
     Active Substance: CAPECITABINE
     Indication: Gastric cancer stage III
     Dosage: ON DAYS 1-14
     Dates: start: 202303
  2. CAPECITABINE [Suspect]
     Active Substance: CAPECITABINE
     Indication: Gastric cancer stage III
     Dosage: ON DAYS 1-14
     Dates: start: 202304
  3. CAPECITABINE [Suspect]
     Active Substance: CAPECITABINE
     Indication: Gastric cancer stage III
     Dosage: ON DAYS 1-14
     Dates: start: 202305
  4. CAPECITABINE [Suspect]
     Active Substance: CAPECITABINE
     Indication: Gastric cancer stage III
     Dosage: ON DAYS 1-14
     Dates: start: 202306
  5. OXALIPLATIN [Suspect]
     Active Substance: OXALIPLATIN
     Indication: Gastric cancer stage III
     Dosage: ON DAY 1
     Dates: start: 202303
  6. OXALIPLATIN [Suspect]
     Active Substance: OXALIPLATIN
     Indication: Gastric cancer stage III
     Dosage: ON DAY 1
     Dates: start: 202304
  7. OXALIPLATIN [Suspect]
     Active Substance: OXALIPLATIN
     Indication: Gastric cancer stage III
     Dosage: ON DAY 1
     Dates: start: 202305
  8. OXALIPLATIN [Suspect]
     Active Substance: OXALIPLATIN
     Indication: Gastric cancer stage III
     Dosage: ON DAY 1
     Dates: start: 202406
  9. TISLELIZUMAB [Suspect]
     Active Substance: TISLELIZUMAB
     Indication: Gastric cancer stage III
     Dosage: ON DAY 1
     Dates: start: 202303
  10. TISLELIZUMAB [Suspect]
     Active Substance: TISLELIZUMAB
     Indication: Gastric cancer stage III
     Dosage: ON DAY 1
     Dates: start: 202304
  11. TISLELIZUMAB [Suspect]
     Active Substance: TISLELIZUMAB
     Indication: Gastric cancer stage III
     Dosage: ON DAY 1
     Dates: start: 202305

REACTIONS (16)
  - Neutropenia [Recovered/Resolved]
  - Mental impairment [Recovered/Resolved]
  - Thrombocytopenia [Recovered/Resolved]
  - Shock [Recovered/Resolved]
  - Multiple organ dysfunction syndrome [Unknown]
  - Atrial fibrillation [Recovered/Resolved]
  - Cardiac dysfunction [Recovered/Resolved]
  - Shock [Recovered/Resolved]
  - Renal impairment [Recovered/Resolved]
  - Drug hypersensitivity [Recovered/Resolved]
  - Drug hypersensitivity [Recovered/Resolved]
  - Pleural effusion [Unknown]
  - Influenza [Recovered/Resolved]
  - Somnolence [Unknown]
  - Hepatic function abnormal [Recovered/Resolved]
  - Drug hypersensitivity [Recovered/Resolved]

NARRATIVE: CASE EVENT DATE: 20230401
